FAERS Safety Report 6833870-8 (Version None)
Quarter: 2010Q3

REPORT INFORMATION
  Report Type: 
  Country: None (occurrence: None)
  Receive Date: 20100712
  Receipt Date: 20070605
  Transmission Date: 20110219
  Serious: No
  Sender: FDA-Public Use
  Company Number: US-PFIZER INC-2007027992

PATIENT
  Sex: Male
  Weight: 74.84 kg

DRUGS (4)
  1. CHANTIX [Suspect]
     Indication: SMOKING CESSATION THERAPY
     Dates: start: 20070312, end: 20070326
  2. ENTEX SOLUTION [Concomitant]
  3. CELEBREX [Concomitant]
  4. ALL OTHER THERAPEUTIC PRODUCTS [Concomitant]

REACTIONS (5)
  - ABNORMAL DREAMS [None]
  - CONSTIPATION [None]
  - DEPRESSION [None]
  - DRY MOUTH [None]
  - IRRITABILITY [None]
